FAERS Safety Report 24562645 (Version 1)
Quarter: 2024Q4

REPORT INFORMATION
  Report Type: Spontaneous
  Country: AR (occurrence: AR)
  Receive Date: 20241029
  Receipt Date: 20241029
  Transmission Date: 20250115
  Serious: Yes (Other)
  Sender: NOVARTIS
  Company Number: AR-002147023-NVSC2024AR208846

PATIENT
  Sex: Female

DRUGS (1)
  1. TEGRETOL [Suspect]
     Active Substance: CARBAMAZEPINE
     Indication: Trigeminal neuralgia
     Dosage: 1600 MG (4 X 400 MG) (1 EVERY 6 HOURS)
     Route: 048

REACTIONS (5)
  - Idiopathic intracranial hypertension [Unknown]
  - Eating disorder [Unknown]
  - Nervousness [Unknown]
  - Mastication disorder [Unknown]
  - Condition aggravated [Unknown]
